FAERS Safety Report 7747366-2 (Version None)
Quarter: 2011Q3

REPORT INFORMATION
  Report Type: 
  Country: None (occurrence: None)
  Receive Date: 20110913
  Receipt Date: 20110831
  Transmission Date: 20111222
  Serious: Yes (Hospitalization)
  Sender: FDA-Public Use
  Company Number: US-GLAXOSMITHKLINE-A0898475A

PATIENT
  Age: 68 Year
  Sex: Male
  Weight: 95.5 kg

DRUGS (13)
  1. LIPITOR [Concomitant]
  2. ACTONEL [Concomitant]
  3. AVANDIA [Suspect]
     Indication: TYPE 2 DIABETES MELLITUS
     Dosage: 8MG PER DAY
     Route: 048
     Dates: start: 20060323, end: 20100601
  4. AMLODIPINE [Concomitant]
  5. LISINOPRIL [Concomitant]
  6. HUMALOG [Concomitant]
  7. PREDNISONE [Concomitant]
  8. AZATHIOPRINE [Concomitant]
  9. HUMULIN N [Concomitant]
  10. NEORAL [Concomitant]
  11. ATENOLOL [Concomitant]
  12. ASPIRIN [Concomitant]
  13. NPH INSULIN [Concomitant]

REACTIONS (4)
  - CORONARY ARTERY DISEASE [None]
  - CORONARY ARTERY BYPASS [None]
  - MYOCARDIAL INFARCTION [None]
  - CAROTID ARTERY OCCLUSION [None]
